FAERS Safety Report 6274684-X (Version None)
Quarter: 2009Q3

REPORT INFORMATION
  Report Type: 
  Country: None (occurrence: None)
  Receive Date: 20090721
  Receipt Date: 20080425
  Transmission Date: 20100115
  Serious: Yes (Other)
  Sender: FDA-Public Use
  Company Number: US-ASTRAZENECA-2008UW04627

PATIENT
  Age: 577 Month
  Sex: Female
  Weight: 95.3 kg

DRUGS (17)
  1. SEROQUEL [Suspect]
     Indication: ANXIETY
     Route: 048
     Dates: start: 20011211
  2. SEROQUEL [Suspect]
     Indication: DEPRESSION
     Route: 048
     Dates: start: 20011211
  3. SEROQUEL [Suspect]
     Dosage: 25MG TO 75MG
     Route: 048
     Dates: start: 20020101, end: 20071101
  4. SEROQUEL [Suspect]
     Dosage: 25MG TO 75MG
     Route: 048
     Dates: start: 20020101, end: 20071101
  5. SINGULAIR [Concomitant]
     Route: 048
     Dates: start: 20030927
  6. CELEXA [Concomitant]
     Route: 048
     Dates: start: 20020926
  7. WELLBUTRIN SR [Concomitant]
     Route: 048
     Dates: start: 20020926
  8. PRAVACHOL [Concomitant]
     Route: 048
     Dates: start: 20030703
  9. LISINOPRIL [Concomitant]
     Dosage: 10 - 20 MG
     Route: 048
     Dates: start: 20031020
  10. LASIX [Concomitant]
     Route: 048
     Dates: start: 20031020
  11. CLONIDINE [Concomitant]
     Dates: start: 20031020
  12. SPIRONOLACTONE [Concomitant]
     Route: 048
     Dates: start: 20031020
  13. ACCUPRIL [Concomitant]
     Dates: start: 20020926
  14. ASPIRIN [Concomitant]
     Route: 048
     Dates: start: 20040704
  15. CARVEDILOL [Concomitant]
     Route: 048
     Dates: start: 20040704
  16. SIMVASTATIN [Concomitant]
     Route: 048
     Dates: start: 20040704
  17. DIGOXIN [Concomitant]
     Route: 048
     Dates: start: 20040704

REACTIONS (2)
  - DIABETES MELLITUS [None]
  - POLYNEUROPATHY [None]
